FAERS Safety Report 5536308-6 (Version None)
Quarter: 2007Q4

REPORT INFORMATION
  Report Type: 
  Country: None (occurrence: None)
  Receive Date: 20071206
  Receipt Date: 20071109
  Transmission Date: 20080405
  Serious: No
  Sender: FDA-Public Use
  Company Number: US-BOEHRINGER INGELHEIM PHARMACEUTICALS, INC.-2007-BP-24358BP

PATIENT
  Age: 56 Year
  Sex: Male

DRUGS (2)
  1. ZANTAC 150 [Suspect]
     Indication: DYSPEPSIA
     Route: 048
     Dates: start: 20071109, end: 20071109
  2. ZANTAC 150 [Suspect]

REACTIONS (2)
  - DYSPEPSIA [None]
  - HICCUPS [None]
